FAERS Safety Report 23891231 (Version 1)
Quarter: 2024Q2

REPORT INFORMATION
  Report Type: Spontaneous
  Country: IN (occurrence: IN)
  Receive Date: 20240523
  Receipt Date: 20240523
  Transmission Date: 20240716
  Serious: Yes (Death, Hospitalization)
  Sender: FDA-Public Use
  Company Number: IN-STRIDES ARCOLAB LIMITED-2024SP005884

PATIENT
  Age: 28 Year
  Sex: Male

DRUGS (8)
  1. MYCOPHENOLATE MOFETIL [Suspect]
     Active Substance: MYCOPHENOLATE MOFETIL
     Indication: Systemic lupus erythematosus
     Dosage: UNK
     Route: 065
     Dates: start: 202010
  2. CYCLOPHOSPHAMIDE [Suspect]
     Active Substance: CYCLOPHOSPHAMIDE
     Indication: Systemic lupus erythematosus
     Dosage: UNK, (RECEIVED 4 DOSES (INJECTIONS) DURING ADMISSION)
     Route: 065
     Dates: start: 202010
  3. CYCLOPHOSPHAMIDE [Suspect]
     Active Substance: CYCLOPHOSPHAMIDE
     Dosage: UNK
     Route: 065
     Dates: start: 2020
  4. HYDROXYCHLOROQUINE [Suspect]
     Active Substance: HYDROXYCHLOROQUINE
     Indication: Systemic lupus erythematosus
     Dosage: UNK
     Route: 065
     Dates: start: 202010
  5. RITUXIMAB [Suspect]
     Active Substance: RITUXIMAB
     Indication: Systemic lupus erythematosus
     Dosage: 1000 MILLIGRAM, (RECEIVED 2 INJECTION)
     Route: 065
     Dates: start: 202104
  6. RITUXIMAB [Suspect]
     Active Substance: RITUXIMAB
     Dosage: UNK, (DRUG CONTINUED)
     Route: 065
     Dates: start: 2021
  7. OBINUTUZUMAB [Suspect]
     Active Substance: OBINUTUZUMAB
     Indication: Systemic lupus erythematosus
     Dosage: UNK (RECEIVED 3 DOSES)
     Route: 065
     Dates: start: 202201
  8. UNSPECIFIED INGREDIENT [Concomitant]
     Active Substance: UNSPECIFIED INGREDIENT
     Indication: Evidence based treatment
     Dosage: UNK
     Route: 065
     Dates: start: 2022

REACTIONS (4)
  - Organising pneumonia [Fatal]
  - Drug ineffective for unapproved indication [Fatal]
  - Systemic lupus erythematosus [Fatal]
  - Aspergillus infection [Fatal]
